FAERS Safety Report 6890499-3 (Version None)
Quarter: 2010Q3

REPORT INFORMATION
  Report Type: 
  Country: None (occurrence: None)
  Receive Date: 20100731
  Receipt Date: 20081111
  Transmission Date: 20110219
  Serious: Yes (Other)
  Sender: FDA-Public Use
  Company Number: US-PFIZER INC-2008095696

PATIENT
  Sex: Female

DRUGS (3)
  1. LIPITOR [Suspect]
  2. ACETYLSALICYLIC ACID SRT [Concomitant]
  3. PROCARDIA XL [Concomitant]

REACTIONS (6)
  - ASTHENIA [None]
  - BLOOD POTASSIUM DECREASED [None]
  - BLOOD POTASSIUM INCREASED [None]
  - BLOOD TRIGLYCERIDES INCREASED [None]
  - DEAFNESS [None]
  - PALPITATIONS [None]
